FAERS Safety Report 17833831 (Version 1)
Quarter: 2020Q2

REPORT INFORMATION
  Report Type: Spontaneous
  Country: US (occurrence: US)
  Receive Date: 20200527
  Receipt Date: 20200527
  Transmission Date: 20200714
  Serious: Yes (Hospitalization)
  Sender: FDA-Public Use
  Company Number: None

PATIENT
  Age: 60 Year
  Sex: Male

DRUGS (10)
  1. HYDROCO [Concomitant]
  2. FAMOTIDINE. [Concomitant]
     Active Substance: FAMOTIDINE
  3. CARVEDILOL. [Concomitant]
     Active Substance: CARVEDILOL
  4. STOOL SOFLNR CAP [Concomitant]
  5. METOPROL TAR [Concomitant]
  6. ATORVASTATIN [Concomitant]
     Active Substance: ATORVASTATIN
  7. AZATHIOPRINE. [Concomitant]
     Active Substance: AZATHIOPRINE
  8. HUMIRA [Suspect]
     Active Substance: ADALIMUMAB
     Indication: COLITIS ULCERATIVE
     Route: 058
     Dates: start: 20170623
  9. IISINOPN^L [Concomitant]
  10. CLOPIDOGREL [Concomitant]
     Active Substance: CLOPIDOGREL BISULFATE

REACTIONS (1)
  - Therapy interrupted [None]

NARRATIVE: CASE EVENT DATE: 20200428
